FAERS Safety Report 4455100-7 (Version None)
Quarter: 2004Q3

REPORT INFORMATION
  Report Type: 
  Country: None (occurrence: None)
  Receive Date: 20040921
  Receipt Date: 20040719
  Transmission Date: 20050211
  Serious: Yes (Death, Life-Threatening, Hospitalization, Other)
  Sender: FDA-Public Use
  Company Number: US-BRISTOL-MYERS SQUIBB COMPANY-12643672

PATIENT
  Age: 76 Year
  Sex: Male
  Weight: 86 kg

DRUGS (7)
  1. TAXOL [Suspect]
     Indication: PROSTATE CANCER
     Dosage: 125 MG/M^2
     Dates: start: 20040627, end: 20040627
  2. VP-16 [Suspect]
     Indication: PROSTATE CANCER
     Dates: start: 20040628, end: 20040711
  3. EMCYT [Suspect]
     Indication: PROSTATE CANCER
     Dates: start: 20040628, end: 20040711
  4. RADIATION THERAPY [Suspect]
     Indication: PROSTATE CANCER
     Dosage: DOSAGE = GY
     Dates: start: 20040406, end: 20040527
  5. LUPRON [Concomitant]
     Indication: PROSTATE CANCER
     Dates: start: 20040108
  6. COUMADIN [Concomitant]
  7. CASODEX [Concomitant]
     Dates: start: 20040108, end: 20040428

REACTIONS (6)
  - ASTHENIA [None]
  - BLOOD PRESSURE DECREASED [None]
  - COMA [None]
  - NEUTROPENIA [None]
  - NEUTROPENIC SEPSIS [None]
  - THROMBOCYTOPENIA [None]
